FAERS Safety Report 18693847 (Version 2)
Quarter: 2021Q1

REPORT INFORMATION
  Report Type: Spontaneous
  Country: JP (occurrence: JP)
  Receive Date: 20210104
  Receipt Date: 20210128
  Transmission Date: 20210419
  Serious: Yes (Hospitalization, Other)
  Sender: FDA-Public Use
  Company Number: JP-GLAXOSMITHKLINE-JP2020GSK259356

PATIENT
  Age: 77 Year
  Sex: Male

DRUGS (1)
  1. OMEGA?3?ACID ETHYL ESTERS. [Suspect]
     Active Substance: OMEGA-3-ACID ETHYL ESTERS
     Indication: BLOOD TRIGLYCERIDES ABNORMAL
     Dosage: 2 G
     Route: 048
     Dates: start: 20200801

REACTIONS (6)
  - Physical deconditioning [Unknown]
  - Loss of consciousness [Unknown]
  - Feeling abnormal [Unknown]
  - Hypotension [Unknown]
  - Decreased appetite [Unknown]
  - Pulse abnormal [Unknown]

NARRATIVE: CASE EVENT DATE: 202008
